FAERS Safety Report 21687293 (Version 2)
Quarter: 2022Q4

REPORT INFORMATION
  Report Type: Spontaneous
  Country: US (occurrence: US)
  Receive Date: 20221206
  Receipt Date: 20221229
  Transmission Date: 20230113
  Serious: No
  Sender: FDA-Public Use
  Company Number: US-BRISTOL-MYERS SQUIBB COMPANY-2022-148274

PATIENT
  Age: 71 Year
  Sex: Male

DRUGS (1)
  1. REVLIMID [Suspect]
     Active Substance: LENALIDOMIDE
     Indication: Product used for unknown indication
     Route: 048

REACTIONS (13)
  - Taste disorder [Unknown]
  - Rash [Unknown]
  - Paraesthesia [Unknown]
  - Nasopharyngitis [Unknown]
  - Fluid retention [Unknown]
  - Weight increased [Unknown]
  - Hypoaesthesia [Unknown]
  - Hypoaesthesia [Unknown]
  - Ageusia [Unknown]
  - Constipation [Unknown]
  - Diarrhoea [Unknown]
  - Cough [Unknown]
  - Rhinorrhoea [Unknown]
